FAERS Safety Report 5427997-5 (Version None)
Quarter: 2007Q3

REPORT INFORMATION
  Report Type: 
  Country: None (occurrence: None)
  Receive Date: 20070731
  Receipt Date: 20070409
  Transmission Date: 20080115
  Serious: No
  Sender: FDA-Public Use
  Company Number: US200704002180

PATIENT
  Age: 62 Year
  Sex: Female

DRUGS (5)
  1. BYETTA [Suspect]
     Indication: TYPE 2 DIABETES MELLITUS
     Dosage: 5 UG, 2/D, SUBCUTANEOUS : 10 UG, 2/D, SUBCUTANEOUS
     Route: 058
     Dates: start: 20050101, end: 20050101
  2. BYETTA [Suspect]
     Indication: TYPE 2 DIABETES MELLITUS
     Dosage: 5 UG, 2/D, SUBCUTANEOUS : 10 UG, 2/D, SUBCUTANEOUS
     Route: 058
     Dates: start: 20050101
  3. EXENATIDE 10MCG PEN, DISPOSABLE DEVICE (EXENATIDE PEN (10MCG)) PEN, DI [Concomitant]
  4. COUMADIN [Concomitant]
  5. METFORMIN HCL [Concomitant]

REACTIONS (2)
  - DIARRHOEA [None]
  - SINUSITIS [None]
